FAERS Safety Report 15879601 (Version 1)
Quarter: 2019Q1

REPORT INFORMATION
  Report Type: Report from Study
  Country: TW (occurrence: TW)
  Receive Date: 20190128
  Receipt Date: 20190128
  Transmission Date: 20190417
  Serious: Yes (Other)
  Sender: FDA-Public Use
  Company Number: PHHY2016TW187314

PATIENT
  Age: 71 Year
  Sex: Female

DRUGS (1)
  1. SEBIVO [Suspect]
     Active Substance: TELBIVUDINE
     Indication: HEPATITIS B
     Dosage: 600 MG, UNK
     Route: 048

REACTIONS (4)
  - Hepatitis B [Unknown]
  - Glucose tolerance test abnormal [Unknown]
  - Type IIb hyperlipidaemia [Unknown]
  - Insomnia [Unknown]
